FAERS Safety Report 5923787-5 (Version None)
Quarter: 2008Q4

REPORT INFORMATION
  Report Type: 
  Country: None (occurrence: None)
  Receive Date: 20081020
  Receipt Date: 20020123
  Transmission Date: 20090506
  Serious: Yes (Death, Hospitalization)
  Sender: FDA-Public Use
  Company Number: ALZ-13218

PATIENT
  Sex: Female
  Weight: 68 kg

DRUGS (4)
  1. DOXORUBICIN HYDROCLHORIDE (DOXIL) [Suspect]
     Indication: OVARIAN CANCER
     Route: 042
  2. TAXOL [Suspect]
     Route: 041
     Dates: start: 19991213
  3. TAXOL [Suspect]
     Indication: OVARIAN CANCER
     Route: 041
     Dates: start: 19991213
  4. CISPLATIN [Suspect]
     Indication: OVARIAN CANCER
     Route: 041
     Dates: start: 19991214

REACTIONS (10)
  - ASPIRATION [None]
  - CARDIAC ARREST [None]
  - DEHYDRATION [None]
  - DIARRHOEA [None]
  - HYPOKALAEMIA [None]
  - METABOLIC ACIDOSIS [None]
  - NEUTROPENIA [None]
  - OVARIAN CANCER [None]
  - RENAL FAILURE [None]
  - RESPIRATORY ARREST [None]
